FAERS Safety Report 10593775 (Version 2)
Quarter: 2014Q4

REPORT INFORMATION
  Report Type: Report from Study
  Country: JP (occurrence: JP)
  Receive Date: 20141119
  Receipt Date: 20141125
  Transmission Date: 20150529
  Serious: Yes (Hospitalization)
  Sender: FDA-Public Use
  Company Number: JP-BAYER-2014-168256

PATIENT
  Age: 74 Year
  Sex: Male

DRUGS (1)
  1. NEXAVAR [Suspect]
     Active Substance: SORAFENIB
     Indication: THYROID CANCER
     Dosage: DAILY DOSE 800 MG
     Route: 048
     Dates: start: 20141104, end: 20141113

REACTIONS (3)
  - Pancreatic enzymes increased [Recovering/Resolving]
  - Hypertension [Recovered/Resolved]
  - Erythema multiforme [Not Recovered/Not Resolved]

NARRATIVE: CASE EVENT DATE: 20141107
